FAERS Safety Report 5210441-0 (Version None)
Quarter: 2007Q1

REPORT INFORMATION
  Report Type: 
  Country: None (occurrence: None)
  Receive Date: 20070117
  Receipt Date: 20060908
  Transmission Date: 20070707
  Serious: Yes (Other)
  Sender: FDA-Public Use
  Company Number: CH-JNJFOC-20060902340

PATIENT
  Age: 38 Year
  Sex: Female

DRUGS (5)
  1. TOPAMAX [Suspect]
     Indication: AFFECT LABILITY
     Route: 048
  2. YASMIN [Interacting]
     Indication: CONTRACEPTION
     Route: 048
  3. NEURONTIN [Concomitant]
     Indication: AFFECT LABILITY
     Route: 048
  4. ZOLOFT [Concomitant]
     Indication: AFFECT LABILITY
     Route: 048
  5. LAMICTAL [Concomitant]
     Indication: AFFECT LABILITY
     Route: 048

REACTIONS (2)
  - DRUG INTERACTION [None]
  - UNINTENDED PREGNANCY [None]
